FAERS Safety Report 7601939-6 (Version None)
Quarter: 2011Q3

REPORT INFORMATION
  Report Type: 
  Country: None (occurrence: None)
  Receive Date: 20110711
  Receipt Date: 20110630
  Transmission Date: 20111222
  Serious: Yes (Other)
  Sender: FDA-Public Use
  Company Number: US-MYLANLABS-2011S1012507

PATIENT
  Age: 68 Year
  Sex: Male
  Weight: 83.01 kg

DRUGS (2)
  1. FENTANYL-100 [Suspect]
     Indication: BACK PAIN
     Dosage: Q72
     Route: 062
     Dates: start: 20090101, end: 20090101
  2. FENTANYL-100 [Suspect]
     Route: 062
     Dates: start: 20100101, end: 20110501

REACTIONS (12)
  - MENTAL DISORDER [None]
  - MOOD SWINGS [None]
  - DYSPNOEA [None]
  - AGITATION [None]
  - NAUSEA [None]
  - MARITAL PROBLEM [None]
  - DRY MOUTH [None]
  - CONFUSIONAL STATE [None]
  - HALLUCINATION [None]
  - MOOD ALTERED [None]
  - DIZZINESS [None]
  - AFFECT LABILITY [None]
